FAERS Safety Report 13714305 (Version 8)
Quarter: 2022Q1

REPORT INFORMATION
  Report Type: Report from Study
  Country: CN (occurrence: None)
  Receive Date: 20170704
  Receipt Date: 20220319
  Transmission Date: 20220423
  Serious: Yes (Hospitalization)
  Sender: FDA-Public Use
  Company Number: CN-ROCHE-1953761

PATIENT
  Age: 58 Year
  Sex: Female
  Weight: 55.5 kg

DRUGS (21)
  1. TRASTUZUMAB [Suspect]
     Active Substance: TRASTUZUMAB
     Indication: HER2 positive breast cancer
     Dosage: LOADING DOSE
     Route: 042
     Dates: start: 20161130, end: 20161130
  2. TRASTUZUMAB [Suspect]
     Active Substance: TRASTUZUMAB
     Dosage: LAST DOSE PRIOR TO VENTRICULAR ARRHYTHMIA: 01/MAR/2017?6 MG/KG FOR CYCLES 2-4 (MAINTENANCE DOSE)
     Route: 042
  3. DOCETAXEL [Suspect]
     Active Substance: DOCETAXEL
     Indication: HER2 positive breast cancer
     Dosage: LAST DOSE PRIOR TO VENTRICULAR ARRHYTHMIA: 01/MAR/2017 (120 MG)
     Route: 042
     Dates: start: 20161130
  4. PERTUZUMAB [Suspect]
     Active Substance: PERTUZUMAB
     Indication: HER2 positive breast cancer
     Dosage: LOADING DOSE
     Route: 042
     Dates: start: 20161130, end: 20161130
  5. PERTUZUMAB [Suspect]
     Active Substance: PERTUZUMAB
     Dosage: DATE OF MOST RECENT DOSE; 01/MAR/2017?MAINTAINANCE DOSE
     Route: 042
  6. NIFEDIPINE [Concomitant]
     Active Substance: NIFEDIPINE
     Indication: Hypertension
     Dates: start: 20170424, end: 20170502
  7. CEFUROXIME SODIUM [Concomitant]
     Active Substance: CEFUROXIME SODIUM
     Indication: Erythema
     Dosage: INDICATION: ANTI-INFLAMMATORY
     Dates: start: 20170321, end: 20170324
  8. CEFUROXIME SODIUM [Concomitant]
     Active Substance: CEFUROXIME SODIUM
     Indication: Skin swelling
  9. CEFUROXIME SODIUM [Concomitant]
     Active Substance: CEFUROXIME SODIUM
     Indication: Sepsis
  10. VANCOMYCIN [Concomitant]
     Active Substance: VANCOMYCIN
     Dosage: INDICATION: ANTI-INFLAMMATORY
     Dates: start: 20170324, end: 20170405
  11. MEZLOCILLIN SODIUM [Concomitant]
     Active Substance: MEZLOCILLIN SODIUM
     Dosage: INDICATION: ANTI-INFLAMMATORY
     Dates: start: 20170324, end: 20170412
  12. BISOPROLOL [Concomitant]
     Active Substance: BISOPROLOL
     Dosage: INDICATION: HEART DAMAGE
     Dates: start: 20170424, end: 20170502
  13. MEXILETINE [Concomitant]
     Active Substance: MEXILETINE
     Dosage: INDICATION: HEART DAMAGE
     Dates: start: 20170424, end: 20170607
  14. PHOSPHOCREATINE SODIUM [Concomitant]
     Active Substance: PHOSPHOCREATINE SODIUM
     Dosage: INDICATION: PREVENTION OF HEART DAMAGE
     Dates: start: 20170424, end: 20170501
  15. UNSPECIFIED INGREDIENT [Concomitant]
     Active Substance: UNSPECIFIED INGREDIENT
     Dosage: INDICATION: NUTRITIONAL SUPPLEMENT
     Dates: start: 20170425, end: 20170501
  16. CODEINE [Concomitant]
     Active Substance: CODEINE
     Indication: Cough
     Dates: start: 20170424, end: 20170504
  17. CEFTRIAXONE SODIUM [Concomitant]
     Active Substance: CEFTRIAXONE SODIUM
     Dosage: INDICATION: ANTI-INFECTION
     Dates: start: 20170517, end: 20170525
  18. CEFUROXIME [Concomitant]
     Active Substance: CEFUROXIME
     Dosage: INDICATION: ANTI-INFECTION
     Dates: start: 20170516, end: 20170516
  19. FRUCTOSE [Concomitant]
     Active Substance: FRUCTOSE
     Dosage: INDICATION: REHYDRATION
     Dates: start: 20170516, end: 20170516
  20. DEXTROSE [Concomitant]
     Active Substance: DEXTROSE
     Dates: start: 20170516, end: 20170516
  21. PHOSPHOLIPID [Concomitant]
     Active Substance: PHOSPHOLIPID
     Dates: start: 20170619, end: 20170625

REACTIONS (1)
  - Ventricular arrhythmia [Recovered/Resolved]

NARRATIVE: CASE EVENT DATE: 20170418
